FAERS Safety Report 7559632-4 (Version None)
Quarter: 2011Q2

REPORT INFORMATION
  Report Type: 
  Country: None (occurrence: None)
  Receive Date: 20110608
  Receipt Date: 20110525
  Transmission Date: 20111010
  Serious: Yes (Hospitalization, Other)
  Sender: FDA-Public Use
  Company Number: 2011PROUSA00331

PATIENT
  Age: 76 Year
  Sex: Male
  Weight: 95.2 kg

DRUGS (11)
  1. FISH OIL (FISH OIL) [Concomitant]
  2. PROVENGE [Suspect]
     Indication: PROSTATE CANCER METASTATIC
     Dosage: 250 ML, SINGLE, INTRAVENOUS
     Route: 042
     Dates: start: 20110422, end: 20110422
  3. METOPROLOL TARTRATE [Concomitant]
  4. BYETTA (EXENATIDE) SOLUTION (EXCEPT SYRUP) [Concomitant]
  5. SIMVASTATIN [Concomitant]
  6. LEUPROLIDE (LEUPRORELIN) [Concomitant]
  7. OXYCODONE HCL (OXYCODONE HYDROCHLORIDE) TABLET [Concomitant]
  8. LISINOPRIL [Concomitant]
  9. FLUTAMIDE [Concomitant]
  10. FUROSEMIDE [Concomitant]
  11. ASPIRIN [Concomitant]

REACTIONS (30)
  - MYALGIA [None]
  - NERVOUSNESS [None]
  - HAEMATOCRIT DECREASED [None]
  - TACHYCARDIA [None]
  - DEVICE RELATED INFECTION [None]
  - FATIGUE [None]
  - MEDICAL DEVICE COMPLICATION [None]
  - PLATELET COUNT DECREASED [None]
  - ASTHENIA [None]
  - BLOOD SODIUM DECREASED [None]
  - ACTIVATED PARTIAL THROMBOPLASTIN TIME PROLONGED [None]
  - ATELECTASIS [None]
  - CLOSTRIDIUM DIFFICILE COLITIS [None]
  - CONFUSIONAL STATE [None]
  - DEPRESSED LEVEL OF CONSCIOUSNESS [None]
  - BLOOD CALCIUM DECREASED [None]
  - STAPHYLOCOCCAL BACTERAEMIA [None]
  - MALAISE [None]
  - BLOOD PRESSURE SYSTOLIC DECREASED [None]
  - TREMOR [None]
  - SOMNOLENCE [None]
  - MUSCULAR WEAKNESS [None]
  - BLOOD UREA INCREASED [None]
  - OEDEMA PERIPHERAL [None]
  - BLOOD GLUCOSE INCREASED [None]
  - HAEMOGLOBIN DECREASED [None]
  - BALANCE DISORDER [None]
  - CARDIAC MURMUR [None]
  - ATRIOVENTRICULAR BLOCK [None]
  - CARDIOMEGALY [None]
